FAERS Safety Report 8507652-5 (Version None)
Quarter: 2012Q3

REPORT INFORMATION
  Report Type: 
  Country: None (occurrence: None)
  Receive Date: 20120713
  Receipt Date: 20120706
  Transmission Date: 20120928
  Serious: No
  Sender: FDA-Public Use
  Company Number: US-BIOGENIDEC-2012BI024111

PATIENT
  Age: 40 Year
  Sex: Female

DRUGS (3)
  1. ZANAFLEX [Concomitant]
     Indication: PAIN
  2. NEURONTIN [Concomitant]
     Indication: PAIN
  3. TYSABRI [Suspect]
     Indication: MULTIPLE SCLEROSIS
     Route: 042
     Dates: start: 20080213, end: 20120501

REACTIONS (5)
  - GAIT DISTURBANCE [None]
  - FALL [None]
  - DIZZINESS [None]
  - ASTHENIA [None]
  - FATIGUE [None]
